FAERS Safety Report 5625177-1 (Version None)
Quarter: 2008Q1

REPORT INFORMATION
  Report Type: 
  Country: None (occurrence: None)
  Receive Date: 20080213
  Receipt Date: 20080201
  Transmission Date: 20080703
  Serious: Yes (Death)
  Sender: FDA-Public Use
  Company Number: AT-GENENTECH-255415

PATIENT
  Age: 68 Year
  Sex: Male

DRUGS (1)
  1. MABTHERA [Suspect]
     Indication: POLYARTHRITIS
     Dosage: 100 MG, UNK
     Route: 042
     Dates: end: 20070901

REACTIONS (3)
  - AORTITIS [None]
  - SPLENITIS [None]
  - STENT PLACEMENT [None]
